FAERS Safety Report 18374882 (Version 1)
Quarter: 2020Q4

REPORT INFORMATION
  Report Type: Spontaneous
  Country: US (occurrence: US)
  Receive Date: 20201012
  Receipt Date: 20201012
  Transmission Date: 20210114
  Serious: Yes (Death, Other)
  Sender: FDA-Public Use
  Company Number: US-GILEAD-2020-0498351

PATIENT
  Age: 76 Year
  Sex: Male
  Weight: 107 kg

DRUGS (19)
  1. PHENYTOIN. [Concomitant]
     Active Substance: PHENYTOIN
  2. PRECEDEX [Concomitant]
     Active Substance: DEXMEDETOMIDINE HYDROCHLORIDE
  3. CHLORHEXIDINE [Concomitant]
     Active Substance: CHLORHEXIDINE
  4. OXYGEN. [Concomitant]
     Active Substance: OXYGEN
  5. NYSTATIN. [Concomitant]
     Active Substance: NYSTATIN
  6. CALCIUM CARBONATE. [Concomitant]
     Active Substance: CALCIUM CARBONATE
  7. FENTANYL. [Concomitant]
     Active Substance: FENTANYL
  8. MIDAZOLAM. [Concomitant]
     Active Substance: MIDAZOLAM
  9. PHENOBARB [PHENOBARBITAL] [Concomitant]
  10. ROBITUSSIN DM [Concomitant]
     Active Substance: DEXTROMETHORPHAN HYDROBROMIDE\GUAIFENESIN
  11. SENNA [SENNOSIDE A+B] [Concomitant]
     Active Substance: SENNOSIDES A AND B
  12. REMDESIVIR. [Suspect]
     Active Substance: REMDESIVIR
     Indication: COVID-19
     Dosage: 100 MG
     Route: 065
     Dates: start: 20200919, end: 20200923
  13. ALBUTEROL [SALBUTAMOL] [Concomitant]
     Active Substance: ALBUTEROL
  14. DULERA [Concomitant]
     Active Substance: FORMOTEROL FUMARATE DIHYDRATE\MOMETASONE FUROATE
  15. DEXAMETHASONE. [Concomitant]
     Active Substance: DEXAMETHASONE
  16. PROTONIX [OMEPRAZOLE] [Concomitant]
     Active Substance: OMEPRAZOLE
  17. QUETIAPINE. [Concomitant]
     Active Substance: QUETIAPINE
  18. HEPARIN [Concomitant]
     Active Substance: HEPARIN SODIUM
  19. MIRALAX [Concomitant]
     Active Substance: POLYETHYLENE GLYCOL 3350

REACTIONS (1)
  - Death [Fatal]

NARRATIVE: CASE EVENT DATE: 20201006
